FAERS Safety Report 6837431-6 (Version None)
Quarter: 2010Q3

REPORT INFORMATION
  Report Type: 
  Country: None (occurrence: None)
  Receive Date: 20100713
  Receipt Date: 20070510
  Transmission Date: 20110219
  Serious: No
  Sender: FDA-Public Use
  Company Number: US-PFIZER INC-2007038760

PATIENT
  Sex: Male
  Weight: 83.9 kg

DRUGS (4)
  1. CHANTIX [Suspect]
     Indication: SMOKING CESSATION THERAPY
     Dates: start: 20070101
  2. LISINOPRIL [Concomitant]
  3. VYTORIN [Concomitant]
     Indication: BLOOD CHOLESTEROL ABNORMAL
     Dosage: 10/20
  4. VYTORIN [Concomitant]

REACTIONS (6)
  - ABDOMINAL PAIN UPPER [None]
  - ABNORMAL DREAMS [None]
  - BLOOD PRESSURE INCREASED [None]
  - IRRITABILITY [None]
  - MOOD ALTERED [None]
  - NERVOUSNESS [None]
